FAERS Safety Report 6145500-1 (Version None)
Quarter: 2009Q2

REPORT INFORMATION
  Report Type: 
  Country: None (occurrence: None)
  Receive Date: 20090402
  Receipt Date: 20090318
  Transmission Date: 20091009
  Serious: Yes (Death)
  Sender: FDA-Public Use
  Company Number: 2009000686

PATIENT
  Age: 80 Year
  Sex: Male

DRUGS (17)
  1. TARCEVA [Suspect]
     Indication: NON-SMALL CELL LUNG CANCER
     Dosage: (150 MG, QD), ORAL
     Route: 048
     Dates: start: 20090220, end: 20090222
  2. SODIUM CHLORIDE [Concomitant]
  3. THYMOPENTIN (THYMOPENTIN) [Concomitant]
  4. GLUCOSE INJECTION (GLUCOSE INJECTION) [Concomitant]
  5. DIPROPHYLLINE (DIPROPHYLLINE) [Concomitant]
  6. ISOSORBIDE DINITRATE [Concomitant]
  7. FRUCTOSE DIPHOSPHATE (FOSFRUCTOSE) [Concomitant]
  8. CEFTIZOXIME SODIUM (CEFTIZOXIME SODIUM) [Concomitant]
  9. SODIUM CHLORIDE 0.9% [Concomitant]
  10. MOCOSOLVAN (AMBROXOL HYDROCHLORIDE) [Concomitant]
  11. METHYLPREDNISOLONE 16MG TAB [Concomitant]
  12. PANTOPRAZOLE SODIUM [Concomitant]
  13. HAEMOCOAGULASE (BATROXOBIN) [Concomitant]
  14. IMIPENEM (IMIPENEM) [Concomitant]
  15. NUTRISON (NUTRISON) [Concomitant]
  16. ANILERIDINE (ANILERIDINE) [Concomitant]
  17. YADANZIYOURU [Concomitant]

REACTIONS (17)
  - ALANINE AMINOTRANSFERASE INCREASED [None]
  - ASPARTATE AMINOTRANSFERASE INCREASED [None]
  - BLOOD ALBUMIN DECREASED [None]
  - BLOOD ALKALINE PHOSPHATASE INCREASED [None]
  - BLOOD CHOLESTEROL DECREASED [None]
  - CHILLS [None]
  - EMPHYSEMA [None]
  - GAMMA-GLUTAMYLTRANSFERASE INCREASED [None]
  - HAEMOGLOBIN DECREASED [None]
  - HYPERPYREXIA [None]
  - INTERSTITIAL LUNG DISEASE [None]
  - LUNG INFECTION [None]
  - PLATELET COUNT INCREASED [None]
  - PLEURAL EFFUSION [None]
  - PNEUMOTHORAX [None]
  - SUDDEN CARDIAC DEATH [None]
  - SUDDEN DEATH [None]
